FAERS Safety Report 5266029-9 (Version None)
Quarter: 2007Q1

REPORT INFORMATION
  Report Type: 
  Country: None (occurrence: None)
  Receive Date: 20070313
  Receipt Date: 20070313
  Transmission Date: 20070707
  Serious: Yes (Hospitalization)
  Sender: FDA-Public Use
  Company Number: None

PATIENT
  Age: 44 Year
  Sex: Female
  Weight: 56.6996 kg

DRUGS (2)
  1. LUPRON [Suspect]
     Dates: start: 20040711, end: 20040711
  2. LUPRON [Suspect]
     Dates: start: 20040823, end: 20040823

REACTIONS (8)
  - AMNESIA [None]
  - BONE PAIN [None]
  - DRUG INEFFECTIVE [None]
  - IMPAIRED WORK ABILITY [None]
  - INFECTION [None]
  - OEDEMA PERIPHERAL [None]
  - PAIN IN EXTREMITY [None]
  - SWELLING [None]
